FAERS Safety Report 18393674 (Version 1)
Quarter: 2020Q4

REPORT INFORMATION
  Report Type: Spontaneous
  Country: US (occurrence: US)
  Receive Date: 20201016
  Receipt Date: 20201016
  Transmission Date: 20210114
  Serious: No
  Sender: FDA-Public Use
  Company Number: US-PFIZER INC-2020400634

PATIENT
  Age: 78 Year
  Sex: Female

DRUGS (1)
  1. ADVIL DUAL ACTION WITH ACETAMINOPHEN [Suspect]
     Active Substance: ACETAMINOPHEN\IBUPROFEN
     Indication: PAIN
     Dosage: 125 MG, DAILY

REACTIONS (2)
  - Drug ineffective [Unknown]
  - Pruritus [Recovered/Resolved]
